FAERS Safety Report 16734701 (Version 3)
Quarter: 2019Q4

REPORT INFORMATION
  Report Type: Report from Study
  Country: None (occurrence: US)
  Receive Date: 20190823
  Receipt Date: 20191213
  Transmission Date: 20200122
  Serious: Yes (Hospitalization)
  Sender: FDA-Public Use
  Company Number: US-INSMED, INC.-US-INS-19-02284

PATIENT
  Age: 81 Year
  Sex: Male

DRUGS (3)
  1. ARIKAYCE [Suspect]
     Active Substance: AMIKACIN
     Indication: PRODUCT USED FOR UNKNOWN INDICATION
     Route: 055
     Dates: end: 2019
  2. LAMIRA NEBULIZER SYSTEM [Suspect]
     Active Substance: DEVICE
  3. ARIKAYCE [Suspect]
     Active Substance: AMIKACIN
     Route: 055
     Dates: start: 2019, end: 2019

REACTIONS (11)
  - Chills [Unknown]
  - Nasal congestion [Unknown]
  - Malaise [Unknown]
  - Aphonia [Unknown]
  - Dyspnoea [Unknown]
  - Pyrexia [Unknown]
  - Intentional dose omission [Unknown]
  - Diarrhoea [Unknown]
  - Respiratory tract congestion [Unknown]
  - Headache [Unknown]
  - Drug intolerance [Unknown]

NARRATIVE: CASE EVENT DATE: 2019
